FAERS Safety Report 5102284-3 (Version None)
Quarter: 2006Q3

REPORT INFORMATION
  Report Type: 
  Country: None (occurrence: None)
  Receive Date: 20060731
  Receipt Date: 20060526
  Transmission Date: 20061208
  Serious: No
  Sender: FDA-Public Use
  Company Number: 2006PV014551

PATIENT
  Age: 54 Year
  Sex: Male
  Weight: 202.7579 kg

DRUGS (3)
  1. BYETTA [Suspect]
     Indication: DIABETES MELLITUS NON-INSULIN-DEPENDENT
     Dosage: 5 MCG;BID;SC
     Route: 058
     Dates: start: 20060501
  2. GLUCOVANCE [Concomitant]
  3. ACTOS [Concomitant]

REACTIONS (3)
  - DECREASED APPETITE [None]
  - HYPOGLYCAEMIA UNAWARENESS [None]
  - THERAPEUTIC RESPONSE UNEXPECTED [None]
